FAERS Safety Report 9200750 (Version 1)
Quarter: 2013Q1

REPORT INFORMATION
  Report Type: Spontaneous
  Country: US (occurrence: None)
  Receive Date: 20130328
  Receipt Date: 20130328
  Transmission Date: 20140127
  Serious: Yes (Hospitalization)
  Sender: FDA-Public Use
  Company Number: None

PATIENT
  Sex: Female

DRUGS (16)
  1. SULFAMETHOXAZOLE/TRIMETHOPRIM 800/160 [Suspect]
     Dosage: APPROX 2-3 WEELS 800/160 BID PO
     Route: 048
  2. CHOLECALCIFEROL [Concomitant]
  3. FERROUS SULFATE [Concomitant]
  4. LEVOTHYROXINE [Concomitant]
  5. OXYCODONE/ACETAMINOPHEN [Concomitant]
  6. GABAPENTIN [Concomitant]
  7. DICLOFENAC [Concomitant]
  8. PRAMIPEXOLE [Concomitant]
  9. SCOPOLAMINE [Concomitant]
  10. RIMEXOLONE [Concomitant]
  11. MULTIVITAMIN [Concomitant]
  12. METOPROLOL [Concomitant]
  13. FUROSEMIDE [Concomitant]
  14. LOSARTAN [Concomitant]
  15. OMEPRAZOLE [Concomitant]
  16. SIMVASTATIN [Concomitant]

REACTIONS (4)
  - Renal injury [None]
  - Hyperkalaemia [None]
  - Leukopenia [None]
  - Thrombocytopenia [None]
